FAERS Safety Report 6474205 (Version 6)
Quarter: 2014Q4

REPORT INFORMATION
  Report Type: Report from Study
  Country: IL (occurrence: IL)
  Receive Date: 20071126
  Receipt Date: 20141114
  Transmission Date: 20150529
  Serious: Yes (Other)
  Sender: FDA-Public Use
  Company Number: PHHO2007IL18914

PATIENT
  Age: 23 Year
  Sex: Female
  Weight: 40.6 kg

DRUGS (1)
  1. LDT600 [Suspect]
     Active Substance: TELBIVUDINE
     Indication: CHRONIC HEPATITIS B
     Dosage: 600 MG, UNK
     Route: 048
     Dates: start: 20070710, end: 20071114

REACTIONS (4)
  - Peripheral sensory neuropathy [Recovering/Resolving]
  - Paraesthesia [Recovering/Resolving]
  - Dysaesthesia [Recovering/Resolving]
  - Hypoaesthesia [Recovering/Resolving]

NARRATIVE: CASE EVENT DATE: 200710
